FAERS Safety Report 9427787 (Version 1)
Quarter: 2013Q3

REPORT INFORMATION
  Report Type: Report from Study
  Country: US (occurrence: US)
  Receive Date: 20130730
  Receipt Date: 20130730
  Transmission Date: 20140515
  Serious: No
  Sender: FDA-Public Use
  Company Number: US-ABBOTT-12P-163-0988683-00

PATIENT
  Sex: Female

DRUGS (3)
  1. NIASPAN (COATED) [Suspect]
     Indication: PRODUCT USED FOR UNKNOWN INDICATION
     Dates: start: 20120906
  2. UNKNOWN THREE MEDICATIONS [Concomitant]
     Indication: PRODUCT USED FOR UNKNOWN INDICATION
  3. UNKNOWN OINTMENT [Concomitant]
     Indication: PRURITUS

REACTIONS (1)
  - Pruritus [Not Recovered/Not Resolved]
